FAERS Safety Report 4553186-2 (Version None)
Quarter: 2005Q1

REPORT INFORMATION
  Report Type: 
  Country: None (occurrence: None)
  Receive Date: 20050112
  Receipt Date: 20050112
  Transmission Date: 20050727
  Serious: No
  Sender: FDA-Public Use
  Company Number: None

PATIENT
  Sex: Male
  Weight: 71.2147 kg

DRUGS (2)
  1. CANCIDAS [Suspect]
     Indication: CANDIDIASIS
     Dosage: 50 MG IV QD (1 DOSE)
     Route: 042
     Dates: start: 20050108
  2. CANCIDAS [Suspect]
     Indication: FUNGAL INFECTION
     Dosage: 50 MG IV QD (1 DOSE)
     Route: 042
     Dates: start: 20050108

REACTIONS (4)
  - DYSPNOEA [None]
  - HEART RATE INCREASED [None]
  - NAUSEA [None]
  - PYREXIA [None]
